FAERS Safety Report 9248102 (Version 1)
Quarter: 2013Q1

REPORT INFORMATION
  Report Type: Spontaneous
  Country: US (occurrence: None)
  Receive Date: 20130305
  Receipt Date: 20130305
  Transmission Date: 20140127
  Serious: Yes (Hospitalization)
  Sender: FDA-Public Use
  Company Number: 163-21880-12101039

PATIENT
  Age: 82 Year
  Sex: Female

DRUGS (9)
  1. REVLIMID [Suspect]
     Indication: PLASMA CELL MYELOMA
     Dosage: 21 IN 28 D
     Route: 048
     Dates: start: 20120913, end: 20120928
  2. SYNTHROID(LEVOTHYROXINE SODIUM)(UNKNOWN) [Concomitant]
  3. TYLENOL ARTHRITIS(PARACETAMOL)(UNKNOWN) [Concomitant]
  4. HYDROCHLOROTHIAZIDE(HYDROCHLOROTHIAZIDE)(UNKNOWN) [Concomitant]
  5. DEXAMETHASONE(DEXAMETHASONE)(UNKNOWN) [Concomitant]
  6. IMODIUM A-D(LOPERAMIDE HYDROCHLORIDE)(UNKNOWN) [Concomitant]
  7. VITAMIN D (ERGOCALCIFEROL)(UNKNOWN) [Concomitant]
  8. VITAMIN B 12(VITAMIN B 12)(UNKNOWN) [Concomitant]
  9. ONDASETRON HCL(ONDANSETRON)(UNKNOWN) [Concomitant]

REACTIONS (5)
  - Gastroenteritis [None]
  - Asthenia [None]
  - Fatigue [None]
  - Cystitis klebsiella [None]
  - Blood calcium decreased [None]
